FAERS Safety Report 8893503 (Version 1)
Quarter: 2012Q4

REPORT INFORMATION
  Report Type: 
  Country: IE (occurrence: IE)
  Receive Date: 20121108
  Receipt Date: 20121108
  Transmission Date: 20130627
  Serious: No
  Sender: FDA-Public Use
  Company Number: IE-JNJFOC-20121100126

PATIENT
  Sex: Female

DRUGS (2)
  1. DUROGESIC DTRANS [Suspect]
     Indication: ARTHRALGIA
     Route: 062
  2. DUROGESIC DTRANS [Suspect]
     Indication: ARTHRALGIA
     Route: 062

REACTIONS (1)
  - Inappropriate schedule of drug administration [Unknown]
